FAERS Safety Report 4487675-6 (Version None)
Quarter: 2004Q4

REPORT INFORMATION
  Report Type: 
  Country: None (occurrence: None)
  Receive Date: 20041027
  Receipt Date: 20041027
  Transmission Date: 20050328
  Serious: No
  Sender: FDA-Public Use
  Company Number: None

PATIENT
  Age: 40 Year
  Sex: Male
  Weight: 91.6266 kg

DRUGS (1)
  1. HURRICAINE SPRAY 20% [Suspect]
     Indication: DIAGNOSTIC PROCEDURE
     Dates: start: 20040909, end: 20040909

REACTIONS (4)
  - ACQUIRED METHAEMOGLOBINAEMIA [None]
  - OXYGEN SATURATION DECREASED [None]
  - PALLOR [None]
  - POST PROCEDURAL COMPLICATION [None]
